FAERS Safety Report 19660683 (Version 1)
Quarter: 2021Q3

REPORT INFORMATION
  Report Type: Spontaneous
  Country: US (occurrence: US)
  Receive Date: 20210805
  Receipt Date: 20210805
  Transmission Date: 20211014
  Serious: Yes (Hospitalization)
  Sender: FDA-Public Use
  Company Number: None

PATIENT
  Age: 70 Year
  Sex: Female
  Weight: 64 kg

DRUGS (5)
  1. GEMCITABINE HYDROCHLORIDE. [Suspect]
     Active Substance: GEMCITABINE HYDROCHLORIDE
     Dates: end: 20210713
  2. PACLITAXEL PROTEIN?BOUND PARTICLES (ALBUMIN?BOUND) [Suspect]
     Active Substance: PACLITAXEL
     Dates: end: 20210713
  3. LANTUS [Concomitant]
     Active Substance: INSULIN GLARGINE
  4. DECADRON [Concomitant]
     Active Substance: DEXAMETHASONE
  5. HUMALOG [Concomitant]
     Active Substance: INSULIN LISPRO

REACTIONS (2)
  - Hypoglycaemia [None]
  - Cerebral infarction [None]

NARRATIVE: CASE EVENT DATE: 20210723
